FAERS Safety Report 21634435 (Version 1)
Quarter: 2022Q4

REPORT INFORMATION
  Report Type: Spontaneous
  Country: US (occurrence: US)
  Receive Date: 20221123
  Receipt Date: 20221123
  Transmission Date: 20230113
  Serious: Yes (Other)
  Sender: FDA-Public Use
  Company Number: US-PFIZER INC-202201313572

PATIENT
  Age: 67 Year
  Sex: Female

DRUGS (1)
  1. PAXLOVID [Suspect]
     Active Substance: NIRMATRELVIR\RITONAVIR
     Indication: COVID-19
     Dosage: UNK UNK, 2X/DAY

REACTIONS (6)
  - Haemorrhoids [Unknown]
  - Haemorrhoids thrombosed [Unknown]
  - Abdominal discomfort [Unknown]
  - Diarrhoea [Unknown]
  - Thyroid disorder [Unknown]
  - Burning sensation [Unknown]
